FAERS Safety Report 7314714-7 (Version None)
Quarter: 2011Q1

REPORT INFORMATION
  Report Type: 
  Country: None (occurrence: None)
  Receive Date: 20110225
  Receipt Date: 20101203
  Transmission Date: 20110831
  Serious: No
  Sender: FDA-Public Use
  Company Number: US-MYLANLABS-2010S1020991

PATIENT
  Age: 3 Decade
  Sex: Male
  Weight: 68.04 kg

DRUGS (4)
  1. SOTRET [Suspect]
     Route: 048
     Dates: end: 20100101
  2. AMNESTEEM [Suspect]
     Route: 048
     Dates: start: 20100528
  3. SOTRET [Suspect]
     Route: 048
     Dates: end: 20100101
  4. AMNESTEEM [Suspect]
     Route: 048
     Dates: start: 20100528

REACTIONS (2)
  - DRY SKIN [None]
  - STREPTOCOCCAL INFECTION [None]
